FAERS Safety Report 11544486 (Version 1)
Quarter: 2015Q3

REPORT INFORMATION
  Report Type: Spontaneous
  Country: IT (occurrence: IT)
  Receive Date: 20150924
  Receipt Date: 20150924
  Transmission Date: 20151125
  Serious: Yes (Other)
  Sender: FDA-Public Use
  Company Number: IT-TEVA-594687ACC

PATIENT
  Age: 73 Year
  Sex: Male

DRUGS (8)
  1. DILATREND - 25 MG COMPRESSE [Concomitant]
     Indication: PRODUCT USED FOR UNKNOWN INDICATION
  2. GAVISCON ADVANCE - (1000MG+200MG)/10 ML SOSPENSIONE ORALE [Concomitant]
     Indication: PRODUCT USED FOR UNKNOWN INDICATION
  3. LIBRADIN - 20 MG CAPSULE A RILASCIO MODIFICATO [Concomitant]
     Indication: PRODUCT USED FOR UNKNOWN INDICATION
  4. CLOPIDOGREL [Suspect]
     Active Substance: CLOPIDOGREL BISULFATE
     Indication: CAROTID ARTERIOSCLEROSIS
     Dosage: 75 MILLIGRAM DAILY; 75 MG DAILY
     Route: 048
     Dates: start: 20150709, end: 20150730
  5. SPIRIVA - 18 MCG CAPSULE [Concomitant]
     Indication: PRODUCT USED FOR UNKNOWN INDICATION
  6. VALPRESSION - 320 MG COMPRESSE RIVESTITE CON FILM [Concomitant]
     Indication: PRODUCT USED FOR UNKNOWN INDICATION
  7. ATORVASTATIN [Concomitant]
     Active Substance: ATORVASTATIN
     Indication: PRODUCT USED FOR UNKNOWN INDICATION
  8. PANTORC - 40 MG COMPRESSE GASTRORESISTETI [Concomitant]
     Indication: PRODUCT USED FOR UNKNOWN INDICATION

REACTIONS (2)
  - Abdominal pain upper [Recovered/Resolved]
  - Chest pain [Recovered/Resolved]

NARRATIVE: CASE EVENT DATE: 20150709
